FAERS Safety Report 8103207-5 (Version None)
Quarter: 2012Q1

REPORT INFORMATION
  Report Type: 
  Country: None (occurrence: None)
  Receive Date: 20120201
  Receipt Date: 20120118
  Transmission Date: 20120608
  Serious: Yes (Death)
  Sender: FDA-Public Use
  Company Number: IT-MYLANLABS-2012S1001570

PATIENT
  Age: 66 Year
  Sex: Female

DRUGS (2)
  1. MELPHALAN HYDROCHLORIDE [Suspect]
     Indication: MALIGNANT MELANOMA
     Dosage: MELPHALAN BOLUS 10 MG/L
  2. MELPHALAN HYDROCHLORIDE [Suspect]
     Dosage: MELPHALAN BOLUS 5 MG/L

REACTIONS (2)
  - LOCAL REACTION [None]
  - ACUTE RESPIRATORY DISTRESS SYNDROME [None]
